FAERS Safety Report 17677776 (Version 1)
Quarter: 2020Q2

REPORT INFORMATION
  Report Type: Spontaneous
  Country: CN (occurrence: CN)
  Receive Date: 20200416
  Receipt Date: 20200416
  Transmission Date: 20200714
  Serious: Yes (Hospitalization, Other)
  Sender: FDA-Public Use
  Company Number: CN-GILEAD-2020-0459312

PATIENT
  Age: 62 Year
  Sex: Male

DRUGS (4)
  1. ADEFOVIR DIPIVOXIL. [Suspect]
     Active Substance: ADEFOVIR DIPIVOXIL
     Indication: HEPATITIS B
     Dosage: UNK
     Route: 065
     Dates: start: 2014, end: 2018
  2. NOVORAPID [Concomitant]
     Active Substance: INSULIN ASPART
     Indication: TYPE 2 DIABETES MELLITUS
     Dosage: BEFORE THREE MEALS
     Route: 058
  3. ACARBOSE. [Concomitant]
     Active Substance: ACARBOSE
     Indication: TYPE 2 DIABETES MELLITUS
     Dosage: UNK
     Route: 048
  4. NIFEDIPINE SUSTAINED RELEASE TABLETS [Concomitant]
     Indication: HYPERTENSION
     Dosage: UNK
     Route: 048

REACTIONS (17)
  - Blood alkaline phosphatase increased [Recovered/Resolved]
  - Hypophosphataemic osteomalacia [Recovering/Resolving]
  - Arthritis [Recovering/Resolving]
  - Epiphyseal disorder [Recovering/Resolving]
  - Blood phosphorus decreased [Recovered/Resolved]
  - Bone pain [Recovered/Resolved]
  - Urine calcium increased [Recovered/Resolved]
  - Blood albumin increased [Recovered/Resolved]
  - Pain in extremity [Recovered/Resolved]
  - Back pain [Recovered/Resolved]
  - Urine phosphorus decreased [Recovered/Resolved]
  - Renal disorder [Recovering/Resolving]
  - Chest pain [Recovered/Resolved]
  - Osteoporosis [Recovering/Resolving]
  - Ankylosing spondylitis [Recovering/Resolving]
  - Blood potassium decreased [Recovered/Resolved]
  - Pain [Recovered/Resolved]

NARRATIVE: CASE EVENT DATE: 2017
